FAERS Safety Report 8854936 (Version 1)
Quarter: 2012Q4

REPORT INFORMATION
  Report Type: 
  Country: US (occurrence: US)
  Receive Date: 20121023
  Receipt Date: 20121023
  Transmission Date: 20130627
  Serious: No
  Sender: FDA-Public Use
  Company Number: US-009507513-1210USA007895

PATIENT
  Sex: Female

DRUGS (2)
  1. COZAAR [Suspect]
     Indication: NEOPLASM
     Dosage: 25 mg, qd
     Route: 048
  2. TOPROL XL TABLETS [Concomitant]
     Dosage: UNK

REACTIONS (4)
  - Headache [Unknown]
  - Dysgeusia [Unknown]
  - Product quality issue [Unknown]
  - Off label use [Unknown]
